FAERS Safety Report 15800281 (Version 3)
Quarter: 2019Q1

REPORT INFORMATION
  Report Type: Report from Study
  Country: AR (occurrence: AR)
  Receive Date: 20190108
  Receipt Date: 20190124
  Transmission Date: 20190417
  Serious: Yes (Death, Life-Threatening, Hospitalization, Other)
  Sender: FDA-Public Use
  Company Number: AR-SHIRE-AR201900223

PATIENT

DRUGS (1)
  1. ICATIBANT [Suspect]
     Active Substance: ICATIBANT ACETATE
     Indication: HEREDITARY ANGIOEDEMA WITH C1 ESTERASE INHIBITOR DEFICIENCY
     Dosage: 30 GRAM, AS REQ^D
     Route: 058

REACTIONS (4)
  - Pneumonia pseudomonal [Fatal]
  - Pneumonia [Fatal]
  - Respiratory tract haemorrhage [Fatal]
  - Hereditary angioedema [Unknown]

NARRATIVE: CASE EVENT DATE: 20181209
